FAERS Safety Report 5744191-9 (Version None)
Quarter: 2008Q2

REPORT INFORMATION
  Report Type: 
  Country: None (occurrence: None)
  Receive Date: 20080516
  Receipt Date: 20080502
  Transmission Date: 20081010
  Serious: Yes (Hospitalization)
  Sender: FDA-Public Use
  Company Number: 2008AL003199

PATIENT
  Age: 96 Year
  Sex: Female

DRUGS (5)
  1. DIGOXIN [Suspect]
     Indication: MYOCARDIAL INFARCTION
     Dosage: DAILY PO
     Route: 048
  2. LASIX [Concomitant]
  3. SYNTHROID [Concomitant]
  4. TOPOROL [Concomitant]
  5. VITAMIN B-12 [Concomitant]

REACTIONS (1)
  - DRUG LEVEL INCREASED [None]
